FAERS Safety Report 8840959 (Version 2)
Quarter: 2015Q1

REPORT INFORMATION
  Report Type: Report from Study
  Country: US (occurrence: US)
  Receive Date: 20121015
  Receipt Date: 20150122
  Transmission Date: 20150721
  Serious: No
  Sender: FDA-Public Use
  Company Number: US-ROCHE-1139449

PATIENT
  Sex: Male
  Weight: 47.4 kg

DRUGS (4)
  1. PROTROPIN [Suspect]
     Active Substance: SOMATREM
     Dosage: 0.3MG/KG/WEEK
     Route: 058
     Dates: start: 19870526
  2. PROTROPIN [Suspect]
     Active Substance: SOMATREM
     Route: 058
  3. PROTROPIN [Suspect]
     Active Substance: SOMATREM
     Route: 030
  4. PROTROPIN [Suspect]
     Active Substance: SOMATREM
     Indication: GROWTH HORMONE DEFICIENCY
     Route: 058

REACTIONS (2)
  - Growth retardation [Unknown]
  - Epiphysiolysis [Unknown]
